FAERS Safety Report 4487026-7 (Version None)
Quarter: 2004Q3

REPORT INFORMATION
  Report Type: 
  Country: None (occurrence: None)
  Receive Date: 20040921
  Receipt Date: 20040407
  Transmission Date: 20050211
  Serious: Yes (Hospitalization)
  Sender: FDA-Public Use
  Company Number: 163-20785-04040231

PATIENT
  Age: 49 Year
  Sex: 0
  Weight: 89.5 kg

DRUGS (2)
  1. THALOMID [Suspect]
     Indication: ANAPLASTIC ASTROCYTOMA
     Dosage: 400 MG AT BEDTIME ORAL
     Route: 048
     Dates: start: 20040309, end: 20040402
  2. CPT-11 (IRINOTECAN) [Suspect]
     Indication: ANAPLASTIC ASTROCYTOMA
     Dosage: 202 MG WEEKLY X 4 WEEKS AND THEN
     Dates: start: 20040309, end: 20040330

REACTIONS (4)
  - DEHYDRATION [None]
  - DIARRHOEA [None]
  - NAUSEA [None]
  - VOMITING [None]
